FAERS Safety Report 9192216 (Version 1)
Quarter: 2013Q1

REPORT INFORMATION
  Report Type: Spontaneous
  Country: IN (occurrence: None)
  Receive Date: 20130325
  Receipt Date: 20130325
  Transmission Date: 20140127
  Serious: Yes (Hospitalization)
  Sender: FDA-Public Use
  Company Number: FK201300824

PATIENT
  Age: 15 Year
  Sex: Male
  Weight: 30 kg

DRUGS (5)
  1. VALPROATE [Suspect]
     Indication: EPILEPSY
  2. VALPROATE [Suspect]
  3. VALPROATE [Suspect]
  4. PHENYTOIN (PHENYTOIN) [Suspect]
  5. CLONAZEPAM [Suspect]

REACTIONS (5)
  - Fall [None]
  - Cephalhaematoma [None]
  - Eye swelling [None]
  - Coagulopathy [None]
  - Toxicity to various agents [None]
